FAERS Safety Report 6605178-7 (Version None)
Quarter: 2010Q1

REPORT INFORMATION
  Report Type: 
  Country: None (occurrence: None)
  Receive Date: 20100226
  Receipt Date: 20100215
  Transmission Date: 20100710
  Serious: Yes (Death, Life-Threatening, Hospitalization)
  Sender: FDA-Public Use
  Company Number: US-AMGEN-KDC392770

PATIENT
  Age: 72 Year
  Sex: Female
  Weight: 60.9 kg

DRUGS (4)
  1. PANITUMUMAB [Suspect]
     Indication: PANCREATIC CARCINOMA
     Dates: start: 20090923, end: 20100125
  2. GEMCITABINE HCL [Suspect]
     Dates: start: 20090923, end: 20100202
  3. RADIATION THERAPY [Suspect]
     Dates: start: 20090923, end: 20091030
  4. 5-FU [Concomitant]
     Dates: start: 20090923, end: 20091030

REACTIONS (14)
  - ASTHENIA [None]
  - DECREASED APPETITE [None]
  - DEPRESSED LEVEL OF CONSCIOUSNESS [None]
  - DYSPNOEA [None]
  - FATIGUE [None]
  - HAEMOGLOBIN DECREASED [None]
  - HYPOALBUMINAEMIA [None]
  - HYPOPHOSPHATAEMIA [None]
  - HYPOXIA [None]
  - INFECTION [None]
  - LETHARGY [None]
  - MALAISE [None]
  - PNEUMONIA [None]
  - SOMNOLENCE [None]
